FAERS Safety Report 24005443 (Version 2)
Quarter: 2024Q3

REPORT INFORMATION
  Report Type: Report from Study
  Country: TW (occurrence: TW)
  Receive Date: 20240624
  Receipt Date: 20240717
  Transmission Date: 20241016
  Serious: Yes (Hospitalization)
  Sender: BAYER
  Company Number: TW-BAYER-2024A090210

PATIENT
  Sex: Male

DRUGS (2)
  1. NEXAVAR [Suspect]
     Active Substance: SORAFENIB
     Indication: Hepatocellular carcinoma
     Dosage: 400 MG, OM
     Route: 048
     Dates: start: 202302, end: 202401
  2. NEXAVAR [Suspect]
     Active Substance: SORAFENIB
     Indication: Hepatocellular carcinoma
     Dosage: 200 MG, OM
     Route: 048
     Dates: start: 202401

REACTIONS (2)
  - Hyperkeratosis [Recovering/Resolving]
  - Off label use [None]

NARRATIVE: CASE EVENT DATE: 20230101
